FAERS Safety Report 15751575 (Version 1)
Quarter: 2018Q4

REPORT INFORMATION
  Report Type: Report from Study
  Country: US (occurrence: US)
  Receive Date: 20181221
  Receipt Date: 20181221
  Transmission Date: 20190205
  Serious: Yes (Other)
  Sender: FDA-Public Use
  Company Number: US-EXELIXIS-CABO-18017749

PATIENT
  Sex: Male

DRUGS (1)
  1. CABOMETYX [Suspect]
     Active Substance: CABOZANTINIB S-MALATE
     Indication: RENAL CANCER
     Dosage: 60 MG, QD
     Route: 048
     Dates: start: 2018, end: 20181213

REACTIONS (4)
  - Drug-induced liver injury [Unknown]
  - Dry mouth [Unknown]
  - Dry skin [Unknown]
  - Hypertension [Unknown]

NARRATIVE: CASE EVENT DATE: 2018
